FAERS Safety Report 9858374 (Version 1)
Quarter: 2014Q1

REPORT INFORMATION
  Report Type: Spontaneous
  Country: GB (occurrence: None)
  Receive Date: 20140129
  Receipt Date: 20140129
  Transmission Date: 20141002
  Serious: Yes (Other)
  Sender: FDA-Public Use
  Company Number: GB-DEXPHARM-20140014

PATIENT
  Age: 45 Year
  Sex: Female
  Weight: 92.25 kg

DRUGS (4)
  1. OMEPRAZOLE [Suspect]
     Dates: start: 20131008
  2. LANSOPRAZOLE [Suspect]
     Dates: start: 20131218
  3. DOMPERIDONE [Concomitant]
  4. TERBINAFINE [Concomitant]

REACTIONS (1)
  - Alopecia [None]
